FAERS Safety Report 18502578 (Version 1)
Quarter: 2020Q4

REPORT INFORMATION
  Report Type: Spontaneous
  Country: FI (occurrence: FI)
  Receive Date: 20201113
  Receipt Date: 20201113
  Transmission Date: 20210114
  Serious: Yes (Other)
  Sender: FDA-Public Use
  Company Number: FI-JNJFOC-20201110687

PATIENT

DRUGS (5)
  1. SANDIMMUNE [Suspect]
     Active Substance: CYCLOSPORINE
     Route: 065
  2. AMLODIPINE                         /00972402/ [Concomitant]
     Active Substance: AMLODIPINE BESYLATE
  3. STELARA [Suspect]
     Active Substance: USTEKINUMAB
     Indication: PSORIASIS
     Route: 058
  4. URSOCHOL [Concomitant]
     Active Substance: URSODIOL
  5. TREXAN                             /00113801/ [Suspect]
     Active Substance: METHOTREXATE SODIUM
     Route: 065

REACTIONS (5)
  - Hepatic cirrhosis [Unknown]
  - Cholangitis sclerosing [Unknown]
  - Hepatic encephalopathy [Unknown]
  - Colitis ulcerative [Unknown]
  - Asthma [Unknown]
